FAERS Safety Report 14685609 (Version 1)
Quarter: 2018Q1

REPORT INFORMATION
  Report Type: Report from Study
  Country: HR (occurrence: HR)
  Receive Date: 20180327
  Receipt Date: 20180327
  Transmission Date: 20180509
  Serious: Yes (Congenital Anomaly, Other)
  Sender: FDA-Public Use
  Company Number: HR-MYLANLABS-2018M1019876

PATIENT
  Sex: Male

DRUGS (1)
  1. GABAPENTIN. [Suspect]
     Active Substance: GABAPENTIN
     Indication: EPILEPSY
     Route: 064

REACTIONS (5)
  - Foetal growth restriction [Unknown]
  - Motor developmental delay [Unknown]
  - Atrial septal defect [Unknown]
  - Myoclonic epilepsy [Unknown]
  - Foetal exposure during pregnancy [Recovered/Resolved]
